FAERS Safety Report 18991400 (Version 1)
Quarter: 2021Q1

REPORT INFORMATION
  Report Type: Spontaneous
  Country: FR (occurrence: FR)
  Receive Date: 20210310
  Receipt Date: 20210310
  Transmission Date: 20210420
  Serious: Yes (Hospitalization)
  Sender: FDA-Public Use
  Company Number: FR-009507513-2103FRA001329

PATIENT
  Age: 61 Year
  Sex: Male
  Weight: 82 kg

DRUGS (1)
  1. PEMBROLIZUMAB. [Suspect]
     Active Substance: PEMBROLIZUMAB
     Indication: BRONCHIAL CARCINOMA
     Dosage: 200 MILLIGRAM
     Route: 042
     Dates: start: 20201015

REACTIONS (1)
  - Macrophage activation [Not Recovered/Not Resolved]

NARRATIVE: CASE EVENT DATE: 20201203
